FAERS Safety Report 9018550 (Version 5)
Quarter: 2014Q1

REPORT INFORMATION
  Report Type: Spontaneous
  Country: GB (occurrence: GB)
  Receive Date: 20130118
  Receipt Date: 20140117
  Transmission Date: 20141002
  Serious: Yes (Other)
  Sender: FDA-Public Use
  Company Number: GB-PFIZER INC-2013019415

PATIENT
  Age: 46 Year
  Sex: Male
  Weight: 75 kg

DRUGS (7)
  1. AMLODIPINE BESILATE [Suspect]
     Dosage: 5 MG, UNK
  2. INCIVO [Interacting]
     Indication: HEPATITIS C
     Dosage: 750 MG, 3X/DAY
     Route: 048
     Dates: start: 20121001
  3. COPEGUS [Interacting]
     Indication: HEPATITIS C
     Dosage: 1000 MG, UNK
     Route: 048
     Dates: start: 20121001
  4. PEGASYS [Concomitant]
     Indication: HEPATITIS C
     Dosage: UNK
     Route: 058
  5. RAMIPRIL [Concomitant]
     Indication: BLOOD PRESSURE
     Dosage: 10 MG, UNK
  6. NOVORAPID [Concomitant]
     Indication: DIABETES MELLITUS
     Dosage: 8/8/18 UNITS
  7. LANTUS [Concomitant]
     Dosage: 22 IU, UNK

REACTIONS (5)
  - Electrocardiogram QT prolonged [Recovered/Resolved]
  - Haemoglobin decreased [Not Recovered/Not Resolved]
  - Drug interaction [Recovered/Resolved]
  - Vision blurred [Recovered/Resolved]
  - Rash [Recovering/Resolving]
